FAERS Safety Report 10540071 (Version 2)
Quarter: 2015Q1

REPORT INFORMATION
  Report Type: Spontaneous
  Country: US (occurrence: None)
  Receive Date: 20141022
  Receipt Date: 20150108
  Transmission Date: 20150720
  Serious: Yes (Other)
  Sender: FDA-Public Use
  Company Number: CIO14057379

PATIENT
  Age: 45 Year
  Sex: Female
  Weight: 56.7 kg

DRUGS (1)
  1. CREST PRO-HEALTH HEALTHY FRESH [Suspect]
     Active Substance: STANNOUS FLUORIDE
     Dosage: ONLY USED ONE TIME, INTRAORAL
     Dates: start: 20140805, end: 20140805

REACTIONS (13)
  - Paraesthesia oral [None]
  - Gingival disorder [None]
  - Loose tooth [None]
  - Oral pain [None]
  - Noninfective gingivitis [None]
  - Gingival bleeding [None]
  - Tooth loss [None]
  - Gingival erythema [None]
  - Gingival pain [None]
  - Tooth disorder [None]
  - Gingivitis [None]
  - Lip swelling [None]
  - Gingival swelling [None]

NARRATIVE: CASE EVENT DATE: 20140805
